FAERS Safety Report 19206934 (Version 2)
Quarter: 2021Q2

REPORT INFORMATION
  Report Type: Report from Study
  Country: US (occurrence: US)
  Receive Date: 20210430
  Receipt Date: 20210513
  Transmission Date: 20210717
  Serious: No
  Sender: FDA-Public Use
  Company Number: US-TAIHO ONCOLOGY  INC-EU-2021-01245

PATIENT
  Age: 90 Year
  Sex: Female
  Weight: 69.01 kg

DRUGS (19)
  1. APIXABAN [Concomitant]
     Active Substance: APIXABAN
     Route: 048
  2. ALBUTEROL HFA [Concomitant]
     Active Substance: ALBUTEROL SULFATE
     Dosage: 90 MCG/ACTUATION HFA AEROSOL INHALER 1 HFA AEROSOL INHALER INHALED 4?6 HOURS AS NEEDED
  3. LEVOTHYROXINE. [Concomitant]
     Active Substance: LEVOTHYROXINE
     Route: 048
  4. VITAMIN B?6 [Concomitant]
     Active Substance: PYRIDOXINE
     Dosage: START TAKING WITH XELODA
     Route: 048
  5. XALATAN [Concomitant]
     Active Substance: LATANOPROST
     Dosage: 1 DROPS INTO EYES AT BEDTIME
     Route: 047
  6. LONSURF [Suspect]
     Active Substance: TIPIRACIL HYDROCHLORIDE\TRIFLURIDINE
     Dosage: CURRENT CYCLE UNKNOWN.
     Route: 048
     Dates: start: 20210415
  7. WELCHOL [Concomitant]
     Active Substance: COLESEVELAM HYDROCHLORIDE
     Dosage: EVERYDAY ADMINISTER WITH A MEAL
     Route: 048
  8. MONTELUKAST [Concomitant]
     Active Substance: MONTELUKAST SODIUM
     Dosage: EVERY EVENING
     Route: 048
  9. TELMISARTAN. [Concomitant]
     Active Substance: TELMISARTAN
     Route: 048
  10. LASIX [Concomitant]
     Active Substance: FUROSEMIDE
     Dosage: EVERY MORNING
     Route: 048
  11. VITAMIN D3 [Concomitant]
     Active Substance: CHOLECALCIFEROL
     Route: 048
  12. NORVASAC [Concomitant]
     Route: 048
  13. ATORVASTATIN [Concomitant]
     Active Substance: ATORVASTATIN
     Route: 048
  14. PRESERVISION AREDS 2 [Concomitant]
     Active Substance: MINERALS\VITAMINS
     Dosage: 250?200?40?1?MG?UNIT?MG?MG CAPSULE, 1 CAPSULE ORAL EVERYDAY IN THE MORNING AND AT BEDTIME GIVE WITH
     Route: 048
  15. COREG [Concomitant]
     Active Substance: CARVEDILOL
     Dosage: ADMINISTER WITH FOOD (MEAL OR SNACK)
     Route: 048
  16. LONSURF [Suspect]
     Active Substance: TIPIRACIL HYDROCHLORIDE\TRIFLURIDINE
     Indication: COLON CANCER
     Dosage: CYCLE 1
     Route: 048
     Dates: start: 20210322
  17. COLACE [Concomitant]
     Active Substance: DOCUSATE SODIUM
     Route: 048
  18. ASPIRIN. [Concomitant]
     Active Substance: ASPIRIN
     Dosage: DELAYED RELEASE (DR/EC)
     Route: 048
  19. CENTRUM SILVER WOMEN [Concomitant]
     Dosage: 8MG IRON ?400 MCG?300 MCG
     Route: 048

REACTIONS (1)
  - Diarrhoea [Not Recovered/Not Resolved]

NARRATIVE: CASE EVENT DATE: 202103
